FAERS Safety Report 6993846-7 (Version None)
Quarter: 2010Q3

REPORT INFORMATION
  Report Type: 
  Country: None (occurrence: None)
  Receive Date: 20100917
  Receipt Date: 20100723
  Transmission Date: 20110219
  Serious: Yes (Hospitalization, Other)
  Sender: FDA-Public Use
  Company Number: US-ASTRAZENECA-2009UW21597

PATIENT
  Age: 51 Year
  Sex: Male
  Weight: 122 kg

DRUGS (3)
  1. SEROQUEL [Suspect]
     Indication: BIPOLAR I DISORDER
     Route: 048
     Dates: start: 20030101, end: 20080101
  2. SEROQUEL [Suspect]
     Route: 048
     Dates: start: 20080615
  3. CYMBALTA [Concomitant]
     Dates: start: 20080615

REACTIONS (5)
  - DIABETIC KETOACIDOSIS [None]
  - INSULIN-REQUIRING TYPE 2 DIABETES MELLITUS [None]
  - OBESITY [None]
  - TYPE 2 DIABETES MELLITUS [None]
  - VISION BLURRED [None]
